FAERS Safety Report 4711314-X (Version None)
Quarter: 2005Q3

REPORT INFORMATION
  Report Type: 
  Country: None (occurrence: None)
  Receive Date: 20050711
  Receipt Date: 20050630
  Transmission Date: 20060218
  Serious: Yes (Hospitalization, Other)
  Sender: FDA-Public Use
  Company Number: JP-MERCK-0507USA00739

PATIENT
  Age: 56 Year
  Sex: Male

DRUGS (4)
  1. PEPCID [Suspect]
     Indication: GASTRIC ULCER
     Route: 048
     Dates: start: 20000401
  2. AMANTADINE HYDROCHLORIDE [Concomitant]
     Route: 065
  3. ECABET SODIUM [Concomitant]
     Route: 065
  4. MAGNESIUM OXIDE [Concomitant]
     Route: 065

REACTIONS (6)
  - CARDIAC FAILURE [None]
  - GASTRIC ULCER [None]
  - GASTRIC ULCER PERFORATION [None]
  - HELICOBACTER INFECTION [None]
  - PERITONITIS [None]
  - PLEURAL EFFUSION [None]
